FAERS Safety Report 8373144-X (Version None)
Quarter: 2012Q2

REPORT INFORMATION
  Report Type: 
  Country: None (occurrence: None)
  Receive Date: 20120521
  Receipt Date: 20120511
  Transmission Date: 20120825
  Serious: No
  Sender: FDA-Public Use
  Company Number: US-BAYER-2011-082660

PATIENT
  Age: 22 Year
  Sex: Female
  Weight: 64 kg

DRUGS (1)
  1. MIRENA [Suspect]
     Indication: CONTRACEPTION
     Dosage: 20 MCG/24HR, CONT
     Route: 015
     Dates: start: 20100809, end: 20110906

REACTIONS (6)
  - DYSMENORRHOEA [None]
  - AMENORRHOEA [None]
  - DYSPAREUNIA [None]
  - METRORRHAGIA [None]
  - DEVICE EXPULSION [None]
  - MENORRHAGIA [None]
